FAERS Safety Report 24966125 (Version 1)
Quarter: 2025Q1

REPORT INFORMATION
  Report Type: Report from Study
  Country: US (occurrence: US)
  Receive Date: 20250213
  Receipt Date: 20250213
  Transmission Date: 20250409
  Serious: Yes (Other)
  Sender: ALEXION PHARMACEUTICALS
  Company Number: US-AstraZeneca-CH-00802376A

PATIENT
  Age: 74 Year

DRUGS (1)
  1. BUDESONIDE\FORMOTEROL\GLYCOPYRRONIUM [Suspect]
     Active Substance: BUDESONIDE\FORMOTEROL\GLYCOPYRRONIUM
     Route: 065

REACTIONS (8)
  - Eye disorder [Unknown]
  - Chronic obstructive pulmonary disease [Unknown]
  - Neoplasm malignant [Unknown]
  - Dyspnoea [Unknown]
  - Product use issue [Unknown]
  - Cerebral disorder [Unknown]
  - Asthenia [Unknown]
  - Paraplegia [Unknown]
